FAERS Safety Report 11573301 (Version 2)
Quarter: 2015Q4

REPORT INFORMATION
  Report Type: Spontaneous
  Country: US (occurrence: None)
  Receive Date: 20150929
  Receipt Date: 20151005
  Transmission Date: 20160304
  Serious: Yes (Other)
  Sender: FDA-Public Use
  Company Number: US-MDT-ADR-2015-01865

PATIENT
  Age: 64 Year
  Sex: Male

DRUGS (2)
  1. COMPOUNDED BACLOFEN INTRATHECAL 200 MCG/ML [Suspect]
     Active Substance: BACLOFEN
     Dosage: 46.7 MCG/DAY
  2. MORPHINE INTRATHECAL [Suspect]
     Active Substance: MORPHINE
     Dosage: 1.7518 MG/DAY

REACTIONS (1)
  - Drug withdrawal syndrome [None]
